FAERS Safety Report 19875326 (Version 1)
Quarter: 2021Q3

REPORT INFORMATION
  Report Type: Report from Study
  Country: US (occurrence: US)
  Receive Date: 20210924
  Receipt Date: 20210924
  Transmission Date: 20211014
  Serious: Yes (Hospitalization, Other)
  Sender: FDA-Public Use
  Company Number: US-AUROBINDO-AUR-APL-2021-039989

PATIENT
  Age: 50 Year
  Sex: Male
  Weight: 77.1 kg

DRUGS (1)
  1. EVOMELA [Suspect]
     Active Substance: MELPHALAN HYDROCHLORIDE
     Indication: AMYLOIDOSIS
     Dosage: 200 MG/M2 FOR TWO DAYS
     Route: 065
     Dates: start: 20210830, end: 20210831

REACTIONS (1)
  - Pulmonary embolism [Unknown]

NARRATIVE: CASE EVENT DATE: 20210909
